FAERS Safety Report 14638016 (Version 1)
Quarter: 2018Q1

REPORT INFORMATION
  Report Type: Spontaneous
  Country: US (occurrence: US)
  Receive Date: 20180314
  Receipt Date: 20180314
  Transmission Date: 20180509
  Serious: No
  Sender: FDA-Public Use
  Company Number: US-VYERA PHARMACEUTICALS, LLC-2017TNG00036

PATIENT
  Age: 58 Year
  Sex: Female

DRUGS (2)
  1. UNSPECIFIED MEDICATIONS [Concomitant]
     Active Substance: UNSPECIFIED INGREDIENT
  2. DARAPRIM [Suspect]
     Active Substance: PYRIMETHAMINE
     Dosage: 100 MG, UNK
     Dates: start: 20170706

REACTIONS (1)
  - Headache [Unknown]

NARRATIVE: CASE EVENT DATE: 20170706
